FAERS Safety Report 7603466-9 (Version None)
Quarter: 2011Q3

REPORT INFORMATION
  Report Type: 
  Country: None (occurrence: None)
  Receive Date: 20110711
  Receipt Date: 20110711
  Transmission Date: 20111222
  Serious: Yes (Other)
  Sender: FDA-Public Use
  Company Number: None

PATIENT
  Age: 35 Year
  Sex: Female
  Weight: 59.4212 kg

DRUGS (3)
  1. GENERIC MOTRIN [Concomitant]
  2. IBUPROFEN [Concomitant]
  3. ALPRAZOLAM [Suspect]
     Indication: ANXIETY
     Dosage: HALF OF PILL 4 TIMES DAY PO
     Route: 048
     Dates: start: 20110601, end: 20110603

REACTIONS (4)
  - PRODUCT SOLUBILITY ABNORMAL [None]
  - DYSARTHRIA [None]
  - SOMNOLENCE [None]
  - CONFUSIONAL STATE [None]
